FAERS Safety Report 5371423-1 (Version None)
Quarter: 2007Q2

REPORT INFORMATION
  Report Type: 
  Country: None (occurrence: None)
  Receive Date: 20070622
  Receipt Date: 20070607
  Transmission Date: 20071010
  Serious: Yes (Hospitalization)
  Sender: FDA-Public Use
  Company Number: 2007000924

PATIENT
  Age: 55 Year
  Sex: Female
  Weight: 71.7 kg

DRUGS (6)
  1. ERLOTINIB(TABLET) (ERLOTINIB HCL) [Suspect]
     Indication: SQUAMOUS CELL CARCINOMA
     Dosage: 150 MG (QD), ORAL
     Route: 048
     Dates: start: 20070223, end: 20070505
  2. BEVACIZUMAB(INJECTION FOR INFUSION) [Suspect]
     Indication: SQUAMOUS CELL CARCINOMA
     Dosage: 15 MG/KG (Q3W), INTRAVENOUS
     Route: 042
     Dates: start: 20070223, end: 20070509
  3. CARBOPLATIN [Suspect]
     Indication: SQUAMOUS CELL CARCINOMA
     Dosage: 6.0 AUC (DAYS 1 AND 22), INTRAVENOUS
     Route: 042
     Dates: start: 20070223
  4. PACLITAXEL [Suspect]
     Indication: SQUAMOUS CELL CARCINOMA
     Dosage: SEE IMAGE
     Route: 042
     Dates: start: 20070223, end: 20070316
  5. FLUOROURACIL [Suspect]
     Dosage: 200 MG/M^2 (DAYS 1-43), INTRAVENOUS
     Route: 042
  6. RADIATION [Suspect]
     Dosage: 45GY UP TO 68.4 GY

REACTIONS (5)
  - DYSPHAGIA [None]
  - FEEDING DISORDER [None]
  - HYPERTENSION [None]
  - ORAL DISCOMFORT [None]
  - PYREXIA [None]
